FAERS Safety Report 8915321 (Version 1)
Quarter: 2012Q4

REPORT INFORMATION
  Report Type: Report from Study
  Country: JP (occurrence: JP)
  Receive Date: 20121119
  Receipt Date: 20121119
  Transmission Date: 20130627
  Serious: Yes (Hospitalization, Other)
  Sender: FDA-Public Use
  Company Number: JP-VERTEX PHARMACEUTICAL INC.-AE-2012-002426

PATIENT
  Age: 59 Year
  Sex: Female

DRUGS (16)
  1. VX-950 (TELAPREVIR) [Suspect]
     Indication: CHRONIC HEPATITIS C
     Dosage: 2250 mg, qd
     Route: 048
     Dates: start: 20120209, end: 20120215
  2. PEGINTRON                          /01543001/ [Suspect]
     Indication: CHRONIC HEPATITIS C
     Dosage: 1.5 ?g/kg, qw
     Route: 058
     Dates: start: 20120209, end: 20120215
  3. PEGINTRON                          /01543001/ [Suspect]
     Dosage: 1.5 ?g/kg, qw
     Route: 058
     Dates: start: 20120224
  4. PEGINTRON                          /01543001/ [Suspect]
     Dosage: 1.25 ?g/kg, qw
     Route: 058
     Dates: end: 20120506
  5. PEGINTRON                          /01543001/ [Suspect]
     Dosage: 1.5 ?g/kg, UNK
     Route: 058
     Dates: start: 20120507, end: 20120716
  6. PEGINTRON                          /01543001/ [Suspect]
     Dosage: 1.25 ?g/kg, qw
     Route: 058
     Dates: start: 20120717, end: 20120722
  7. PEGINTRON                          /01543001/ [Suspect]
     Dosage: 1.5 ?g/kg, qw
     Route: 058
     Dates: start: 20120723
  8. REBETOL [Suspect]
     Indication: CHRONIC HEPATITIS C
     Dosage: 400 mg, qd
     Route: 048
     Dates: start: 20120209, end: 20120215
  9. REBETOL [Suspect]
     Dosage: 400 mg, qd
     Route: 048
     Dates: start: 20120224, end: 20120318
  10. REBETOL [Suspect]
     Dosage: 200 mg, qd
     Route: 048
     Dates: start: 20120319, end: 20120422
  11. REBETOL [Suspect]
     Dosage: 300 mg, qd
     Route: 048
     Dates: start: 20120423, end: 20120701
  12. REBETOL [Suspect]
     Dosage: 400 mg, qd
     Route: 048
     Dates: start: 20120702, end: 20120722
  13. REBETOL [Suspect]
     Dosage: 200 mg, qd
     Route: 048
     Dates: start: 20120723
  14. LOXONIN [Concomitant]
     Dosage: 60 mg, prn
     Route: 048
     Dates: start: 20120209, end: 20120211
  15. CYTOTEC [Concomitant]
     Dosage: 100 ?g, prn
     Route: 048
     Dates: start: 20120209, end: 20120211
  16. LENDORMIN [Concomitant]
     Dosage: 0.25 mg, qd
     Route: 048

REACTIONS (3)
  - Depression [Recovered/Resolved]
  - Insomnia [Recovered/Resolved]
  - Drug eruption [Recovered/Resolved]
